FAERS Safety Report 17760396 (Version 1)
Quarter: 2020Q2

REPORT INFORMATION
  Report Type: Spontaneous
  Country: US (occurrence: US)
  Receive Date: 20200508
  Receipt Date: 20200508
  Transmission Date: 20200714
  Serious: No
  Sender: FDA-Public Use
  Company Number: None

PATIENT
  Age: 82 Year
  Sex: Male
  Weight: 65.25 kg

DRUGS (6)
  1. TUMERIC [Concomitant]
     Active Substance: HERBALS\TURMERIC
  2. PHENAZOPYRIDENE 100MG TABLET [Suspect]
     Active Substance: PHENAZOPYRIDINE HYDROCHLORIDE
     Indication: CYSTOSCOPY
     Dosage: ?          QUANTITY:1 TABLET(S);?
     Route: 048
     Dates: start: 20200505, end: 20200508
  3. ASPIRIN. [Concomitant]
     Active Substance: ASPIRIN
  4. VITAMIN D [Concomitant]
     Active Substance: VITAMIN D NOS
  5. GARLIC. [Concomitant]
     Active Substance: GARLIC
  6. OREGANO OIL [Concomitant]

REACTIONS (1)
  - Muscle spasms [None]

NARRATIVE: CASE EVENT DATE: 20200506
